FAERS Safety Report 16811942 (Version 1)
Quarter: 2019Q3

REPORT INFORMATION
  Report Type: Spontaneous
  Country: CH (occurrence: CH)
  Receive Date: 20190916
  Receipt Date: 20190916
  Transmission Date: 20191005
  Serious: Yes (Hospitalization)
  Sender: FDA-Public Use
  Company Number: PHHY2019CH209861

PATIENT
  Age: 68 Year
  Sex: Male
  Weight: 69.6 kg

DRUGS (3)
  1. HUMALOG MIX [Suspect]
     Active Substance: INSULIN LISPRO
     Indication: DIABETES MELLITUS MANAGEMENT
     Dosage: DOSE AS PER PRACTICE FOR GLYCAEMIC CORRECTION; RECENTLY INTRODUCED MEDICATION
     Route: 058
     Dates: start: 2019, end: 201907
  2. METFIN [Suspect]
     Active Substance: METFORMIN HYDROCHLORIDE
     Indication: PRODUCT USED FOR UNKNOWN INDICATION
     Dosage: 500 MG, TID
     Route: 048
  3. LANTUS [Suspect]
     Active Substance: INSULIN GLARGINE
     Indication: PRODUCT USED FOR UNKNOWN INDICATION
     Dosage: TREATMENT START DATE UNKNOWN, DOSAGE REDUCED TO 16 IU/DAY
     Route: 058

REACTIONS (2)
  - Syncope [Recovered/Resolved]
  - Hypoglycaemia [Recovered/Resolved]

NARRATIVE: CASE EVENT DATE: 20190718
